FAERS Safety Report 5500386-0 (Version None)
Quarter: 2007Q4

REPORT INFORMATION
  Report Type: 
  Country: None (occurrence: None)
  Receive Date: 20071024
  Receipt Date: 20071024
  Transmission Date: 20080405
  Serious: Yes (Other)
  Sender: FDA-Public Use
  Company Number: None

PATIENT
  Age: 84 Year
  Sex: Female

DRUGS (5)
  1. BONIVA [Suspect]
     Indication: OSTEOPOROSIS
     Dosage: 1 TABLET EVERY MONTH
     Dates: start: 20070918
  2. HYZAAR [Concomitant]
  3. CATAPRES [Concomitant]
  4. SPIRONOLACTONE [Concomitant]
  5. METOPROLOL TARTRATE [Concomitant]

REACTIONS (2)
  - LOOSE TOOTH [None]
  - TOOTH EXTRACTION [None]
